FAERS Safety Report 7379281-0 (Version None)
Quarter: 2011Q1

REPORT INFORMATION
  Report Type: 
  Country: None (occurrence: None)
  Receive Date: 20110328
  Receipt Date: 20101124
  Transmission Date: 20110831
  Serious: Yes (Hospitalization)
  Sender: FDA-Public Use
  Company Number: US-AMGEN-USANI2010005197

PATIENT
  Age: 64 Year
  Sex: Female

DRUGS (9)
  1. PROPRANOLOL [Concomitant]
     Dosage: 20 MG, TID
     Route: 048
  2. ZOLOFT [Concomitant]
     Dosage: 50 MG, QD
     Route: 048
  3. VITAMIN D2 [Concomitant]
     Dosage: 50000 UNIT, QWK
     Route: 048
  4. AMBIEN [Concomitant]
     Dosage: 10 MG, PRN
     Route: 048
  5. MULTIVITAMIN                       /00097801/ [Concomitant]
     Dosage: D
     Route: 048
  6. ETANERCEPT [Suspect]
     Indication: PSORIASIS
     Dosage: 50 MG, QWK
     Route: 058
     Dates: start: 20061219
  7. XANAX [Concomitant]
     Dosage: 0.25 MG, QD
     Route: 048
  8. LEVOXYL [Concomitant]
     Dosage: 100 A?G, QD
     Route: 048
  9. LIPITOR [Concomitant]
     Dosage: 20 MG, QD
     Route: 048

REACTIONS (3)
  - GASTROOESOPHAGEAL REFLUX DISEASE [None]
  - HIATUS HERNIA [None]
  - CHEST DISCOMFORT [None]
